FAERS Safety Report 13545230 (Version 1)
Quarter: 2017Q2

REPORT INFORMATION
  Report Type: Spontaneous
  Country: US (occurrence: US)
  Receive Date: 20170515
  Receipt Date: 20170515
  Transmission Date: 20170830
  Serious: No
  Sender: FDA-Public Use
  Company Number: US-ROCHE-GNE323266

PATIENT
  Age: 73 Year
  Sex: Female
  Weight: 78 kg

DRUGS (2)
  1. XOLAIR [Suspect]
     Active Substance: OMALIZUMAB
     Indication: ASTHMA
     Route: 042
     Dates: start: 20110720
  2. IGG [Concomitant]
     Active Substance: HUMAN IMMUNOGLOBULIN G
     Indication: HYPERGLOBULINAEMIA
     Route: 042

REACTIONS (1)
  - Chills [Recovered/Resolved]

NARRATIVE: CASE EVENT DATE: 20110803
